FAERS Safety Report 13211805 (Version 4)
Quarter: 2019Q2

REPORT INFORMATION
  Report Type: Spontaneous
  Country: US (occurrence: US)
  Receive Date: 20170210
  Receipt Date: 20190610
  Transmission Date: 20190711
  Serious: Yes (Other)
  Sender: FDA-Public Use
  Company Number: US-BAYER-2017-020917

PATIENT
  Age: 42 Year
  Sex: Male
  Weight: 88.44 kg

DRUGS (8)
  1. KOGENATE FS [Suspect]
     Active Substance: ANTIHEMOPHILIC FACTOR, HUMAN RECOMBINANT
     Indication: FACTOR VIII DEFICIENCY
     Dosage: 3000 U, QOD,  (~3000 U PROPHYLAXIS)
     Route: 042
  2. KOGENATE FS [Suspect]
     Active Substance: ANTIHEMOPHILIC FACTOR, HUMAN RECOMBINANT
     Indication: FACTOR VIII DEFICIENCY
     Dosage: 3000 U, QD (3 DOSES USED TO TREAT THE BILATERAL ANKLE BLEED)
  3. KOGENATE FS [Suspect]
     Active Substance: ANTIHEMOPHILIC FACTOR, HUMAN RECOMBINANT
     Indication: FACTOR VIII DEFICIENCY
     Dosage: 3000 U, PRN ( ~3000 UNITS DAILY UNTIL BLEEDING RESOLVES)
     Route: 042
  4. KOGENATE FS [Suspect]
     Active Substance: ANTIHEMOPHILIC FACTOR, HUMAN RECOMBINANT
     Indication: FACTOR VIII DEFICIENCY
     Dosage: 3000 U, QD (3 DOSES USED TO TREAT THE ANKLES BLEED)
     Dates: start: 201705, end: 201705
  5. TRAMADOL HCL [Concomitant]
     Active Substance: TRAMADOL HYDROCHLORIDE
  6. KOGENATE FS [Suspect]
     Active Substance: ANTIHEMOPHILIC FACTOR, HUMAN RECOMBINANT
     Indication: HAEMORRHAGE PROPHYLAXIS
     Dosage: 3000 U, PRN ( ~3000 UNITS DAILY UNTIL BLEEDING RESOLVES)
     Route: 042
     Dates: start: 201601
  7. SYNTHROID [Concomitant]
     Active Substance: LEVOTHYROXINE SODIUM
  8. KOGENATE FS [Suspect]
     Active Substance: ANTIHEMOPHILIC FACTOR, HUMAN RECOMBINANT
     Indication: FACTOR VIII DEFICIENCY
     Dosage: 3000 U, QOD, PROPHYLAXIS
     Route: 042
     Dates: start: 201601

REACTIONS (3)
  - Haemarthrosis [Unknown]
  - Haemarthrosis [None]
  - Haemarthrosis [Unknown]

NARRATIVE: CASE EVENT DATE: 201701
